FAERS Safety Report 8076205-8 (Version None)
Quarter: 2012Q1

REPORT INFORMATION
  Report Type: 
  Country: None (occurrence: None)
  Receive Date: 20120127
  Receipt Date: 20120120
  Transmission Date: 20120608
  Serious: Yes (Other)
  Sender: FDA-Public Use
  Company Number: US-PFIZER INC-2012016998

PATIENT
  Sex: Male

DRUGS (1)
  1. METRONIDAZOLE [Suspect]
     Dosage: UNK

REACTIONS (4)
  - CHOKING [None]
  - FOREIGN BODY [None]
  - ASTHMA [None]
  - SENSATION OF FOREIGN BODY [None]
